FAERS Safety Report 10756062 (Version 1)
Quarter: 2015Q1

REPORT INFORMATION
  Report Type: Report from Study
  Country: IN (occurrence: IN)
  Receive Date: 20150202
  Receipt Date: 20150202
  Transmission Date: 20150721
  Serious: Yes (Death, Other)
  Sender: FDA-Public Use
  Company Number: IN-PFIZER INC-2015039403

PATIENT

DRUGS (3)
  1. CAPECITABINE. [Suspect]
     Active Substance: CAPECITABINE
     Indication: GASTROOESOPHAGEAL CANCER
     Dosage: 1250 MG/M2, CYCLIC  (EVERY 21 DAYS, 2 CYCLES)
     Route: 042
  2. OXALIPLATIN. [Suspect]
     Active Substance: OXALIPLATIN
     Indication: GASTROOESOPHAGEAL CANCER
     Dosage: 130 MG/M2, CYCLIC (EVERY 21 DAYS, 2 CYCLES)
     Route: 042
  3. EPIRUBICIN HCL [Suspect]
     Active Substance: EPIRUBICIN HYDROCHLORIDE
     Indication: GASTROOESOPHAGEAL CANCER
     Dosage: 50 MG/M2, CYCLIC (EVERY 21 DAYS, 2 CYCLES)
     Route: 042

REACTIONS (2)
  - Acute kidney injury [Fatal]
  - Diarrhoea [Unknown]
